FAERS Safety Report 13988894 (Version 2)
Quarter: 2018Q3

REPORT INFORMATION
  Report Type: Report from Study
  Country: None (occurrence: CZ)
  Receive Date: 20170919
  Receipt Date: 20180917
  Transmission Date: 20181010
  Serious: Yes (Hospitalization)
  Sender: FDA-Public Use
  Company Number: CZ-ABBVIE-17P-217-2098086-00

PATIENT
  Age: 52 Year
  Sex: Male
  Weight: 107 kg

DRUGS (5)
  1. STADAMET [Concomitant]
     Active Substance: METFORMIN HYDROCHLORIDE
     Indication: PRODUCT USED FOR UNKNOWN INDICATION
  2. HUMIRA [Suspect]
     Active Substance: ADALIMUMAB
     Route: 058
     Dates: start: 20170911
  3. LARUS [Concomitant]
     Indication: HYPERCHOLESTEROLAEMIA
     Dates: start: 201212
  4. HUMIRA [Suspect]
     Active Substance: ADALIMUMAB
     Indication: PSORIASIS
     Route: 058
     Dates: start: 20080218, end: 20170604
  5. PRESTARIUM COMBI [Concomitant]
     Indication: PRODUCT USED FOR UNKNOWN INDICATION

REACTIONS (6)
  - C-reactive protein abnormal [Unknown]
  - Diabetes mellitus [Unknown]
  - Lymphadenopathy [Unknown]
  - Fatigue [Unknown]
  - Tularaemia [Recovered/Resolved]
  - Pneumonia [Unknown]

NARRATIVE: CASE EVENT DATE: 201612
